FAERS Safety Report 7335947-X (Version None)
Quarter: 2011Q1

REPORT INFORMATION
  Report Type: 
  Country: None (occurrence: None)
  Receive Date: 20110307
  Receipt Date: 20110228
  Transmission Date: 20110831
  Serious: Yes (Hospitalization, Other)
  Sender: FDA-Public Use
  Company Number: US-PFIZER INC-2010174959

PATIENT
  Sex: Male
  Weight: 68 kg

DRUGS (12)
  1. MARINOL [Concomitant]
     Dosage: 5 MG, 1X/DAY BEFORE BREAKFAST
  2. PROMETHAZINE [Concomitant]
     Dosage: 25 MG, EVERY 6 HOURS AS NEEDED
     Route: 048
  3. ZOCOR [Concomitant]
     Dosage: 40 MG, 1X/DAY
     Route: 048
  4. PLETAL [Concomitant]
     Indication: VEIN DISORDER
     Dosage: 100 MG, 2X/DAY
  5. ACETYLSALICYLIC ACID [Concomitant]
     Dosage: 81 MG, 1X/DAY
     Route: 048
  6. DEPAKOTE [Concomitant]
     Dosage: 500 MG,EVERY 8 HOURS
     Route: 048
  7. LIORESAL [Concomitant]
     Dosage: 10 MG, 3X/DAY
     Route: 048
  8. DILANTIN [Suspect]
     Indication: CONVULSION
     Dosage: 100 MG, 4X/DAY
     Route: 048
  9. MAALOX PLUS EXTRA STRENGTH [Concomitant]
     Indication: ABDOMINAL DISCOMFORT
     Dosage: 225-200MG/5ML, 30ML 4X/DAY
     Route: 048
  10. MARINOL [Concomitant]
     Dosage: 2.5 MG, 1X/DAY BEFORE PM MEAL
     Route: 048
  11. DILANTIN [Suspect]
     Dosage: 200 MG, 3X/DAY
     Route: 048
     Dates: end: 20101215
  12. NITROSTAT [Concomitant]
     Indication: CHEST PAIN
     Dosage: 0.4 MG EVERY 5 MINS AS NEEDED
     Route: 060

REACTIONS (5)
  - OVERDOSE [None]
  - NAUSEA [None]
  - DRUG LEVEL INCREASED [None]
  - MUSCULOSKELETAL DISCOMFORT [None]
  - BLOOD CHOLESTEROL INCREASED [None]
